FAERS Safety Report 9464434 (Version 1)
Quarter: 2013Q3

REPORT INFORMATION
  Report Type: Spontaneous
  Country: US (occurrence: US)
  Receive Date: 20130819
  Receipt Date: 20130819
  Transmission Date: 20140515
  Serious: No
  Sender: FDA-Public Use
  Company Number: US-PFIZER INC-2013239227

PATIENT
  Sex: 0

DRUGS (2)
  1. DILANTIN [Suspect]
     Dosage: 400 MG
  2. KEPPRA [Suspect]
     Dosage: UNK

REACTIONS (2)
  - Middle insomnia [Unknown]
  - Feeling abnormal [Unknown]
